FAERS Safety Report 15337737 (Version 1)
Quarter: 2018Q4

REPORT INFORMATION
  Report Type: Spontaneous
  Country: ES (occurrence: ES)
  Receive Date: 20180831
  Receipt Date: 20180831
  Transmission Date: 20190204
  Serious: Yes (Other)
  Sender: FDA-Public Use
  Company Number: ES-TEVA-2018-ES-949948

PATIENT
  Age: 61 Year
  Sex: Female

DRUGS (6)
  1. IBRANCE [Suspect]
     Active Substance: PALBOCICLIB
     Indication: BREAST CANCER
     Dosage: 125 MG 21 DAYS X 28 DAYS
     Route: 048
     Dates: start: 20180611
  2. ZOMETA [Suspect]
     Active Substance: ZOLEDRONIC ACID
     Indication: BREAST CANCER
     Dosage: EVERY 1.5 MONTHS
     Route: 065
     Dates: start: 20180510
  3. TELMISARTAN (1099A) [Concomitant]
     Indication: HYPERTENSION
     Dosage: 40 MILLIGRAM DAILY; 1-0-0
     Route: 048
  4. ATORVASTATINA (7400A) [Concomitant]
     Active Substance: ATORVASTATIN
     Dosage: 40 MILLIGRAM DAILY; 0-0-1
     Route: 048
  5. LETROZOL 2,5 MG COMPRIMIDO [Suspect]
     Active Substance: LETROZOLE
     Indication: BREAST CANCER
     Dosage: 2.5 MILLIGRAM DAILY; 1 TABLET PER DAY
     Route: 048
     Dates: start: 20180502
  6. METFORMINA (1359A) [Concomitant]
     Active Substance: METFORMIN HYDROCHLORIDE
     Indication: DIABETES MELLITUS
     Dosage: 1700 MILLIGRAM DAILY; 1-1-0
     Route: 048

REACTIONS (3)
  - Anaemia [Unknown]
  - Neutropenia [Unknown]
  - Leukopenia [Recovered/Resolved]

NARRATIVE: CASE EVENT DATE: 20180625
